FAERS Safety Report 9720083 (Version 2)
Quarter: 2014Q1

REPORT INFORMATION
  Report Type: Spontaneous
  Country: US (occurrence: US)
  Receive Date: 20131128
  Receipt Date: 20140106
  Transmission Date: 20141002
  Serious: No
  Sender: FDA-Public Use
  Company Number: US-009507513-1311USA006395

PATIENT
  Age: 56 Year
  Sex: Male
  Weight: 87.53 kg

DRUGS (2)
  1. PEGINTRON [Suspect]
     Indication: HEPATITIS C
     Dosage: REDIPEN, 150 MICROGRAM, QW
     Route: 058
     Dates: start: 20130709
  2. RIBASPHERE [Suspect]
     Indication: HEPATITIS C
     Dosage: UNK
     Route: 048
     Dates: start: 20130709

REACTIONS (3)
  - Arthralgia [Not Recovered/Not Resolved]
  - Product quality issue [Unknown]
  - Underdose [Unknown]
